FAERS Safety Report 7693553-1 (Version None)
Quarter: 2011Q3

REPORT INFORMATION
  Report Type: 
  Country: None (occurrence: None)
  Receive Date: 20110815
  Receipt Date: 20110802
  Transmission Date: 20111222
  Serious: Yes (Disabling)
  Sender: FDA-Public Use
  Company Number: OSCN-NO-1006S-0157

PATIENT
  Age: 38 Year
  Sex: Female
  Weight: 49 kg

DRUGS (5)
  1. MAGNEVIST [Suspect]
     Dosage: 5 ML, SINGLE DOSE, INTRAVENOUS
     Route: 042
     Dates: start: 20050509, end: 20050509
  2. MAGNEVIST [Suspect]
     Dosage: 5 ML, SINGLE DOSE, INTRAVENOUS
     Route: 042
     Dates: start: 20070125, end: 20070125
  3. GADOVIST (GADOBUTROL) [Suspect]
     Dosage: 15 ML, SINGLE DOSE
     Dates: start: 20080131, end: 20080131
  4. RESOVIST (GADOPENTETIC ACID [Concomitant]
  5. GADOLINIUM (UNSPECIFIED) (GADOLINIUM) [Suspect]
     Indication: PRODUCT USED FOR UNKNOWN INDICATION
     Dosage: 15 ML, SINGLE DOSE, INTRAVENOUS
     Route: 042
     Dates: start: 20060428, end: 20060428

REACTIONS (18)
  - BLISTER [None]
  - MOBILITY DECREASED [None]
  - FOLLICULITIS [None]
  - NEPHROGENIC SYSTEMIC FIBROSIS [None]
  - ECZEMA [None]
  - SKIN HYPERTROPHY [None]
  - SKIN FISSURES [None]
  - ACTIVITIES OF DAILY LIVING IMPAIRED [None]
  - SKIN FIBROSIS [None]
  - SKIN TIGHTNESS [None]
  - HAEMODIALYSIS [None]
  - SKIN EXFOLIATION [None]
  - FINGER DEFORMITY [None]
  - ACQUIRED PORPHYRIA [None]
  - ARTHROPATHY [None]
  - MUSCULOSKELETAL STIFFNESS [None]
  - PAIN IN EXTREMITY [None]
  - ARTHRALGIA [None]
